FAERS Safety Report 16174228 (Version 1)
Quarter: 2019Q2

REPORT INFORMATION
  Report Type: Spontaneous
  Country: US (occurrence: US)
  Receive Date: 20190409
  Receipt Date: 20190409
  Transmission Date: 20190711
  Serious: Yes (Death)
  Sender: FDA-Public Use
  Company Number: PHHY2019US078907

PATIENT
  Age: 57 Year
  Sex: Male

DRUGS (2)
  1. ENOXAPARIN [Suspect]
     Active Substance: ENOXAPARIN
     Indication: ACUTE MYOCARDIAL INFARCTION
     Route: 065
  2. INSULIN [Suspect]
     Active Substance: INSULIN NOS
     Indication: DIABETIC KETOACIDOSIS
     Route: 041

REACTIONS (5)
  - Brain oedema [Fatal]
  - Bradycardia [Fatal]
  - Respiratory depression [Fatal]
  - Subdural haemorrhage [Fatal]
  - Agitation [Fatal]
